FAERS Safety Report 24842230 (Version 2)
Quarter: 2025Q1

REPORT INFORMATION
  Report Type: Spontaneous
  Country: JP (occurrence: JP)
  Receive Date: 20250115
  Receipt Date: 20250122
  Transmission Date: 20250408
  Serious: Yes (Other)
  Sender: NOVARTIS
  Company Number: JP-002147023-NVSJ2025JP000789

PATIENT
  Age: 62 Year
  Sex: Male

DRUGS (2)
  1. PAZOPANIB [Suspect]
     Active Substance: PAZOPANIB
     Indication: Renal cancer metastatic
     Route: 065
  2. PAZOPANIB [Suspect]
     Active Substance: PAZOPANIB
     Route: 065

REACTIONS (3)
  - Liver disorder [Unknown]
  - Renal cancer metastatic [Unknown]
  - Malignant neoplasm progression [Unknown]
